FAERS Safety Report 16300553 (Version 1)
Quarter: 2019Q2

REPORT INFORMATION
  Report Type: Spontaneous
  Country: US (occurrence: US)
  Receive Date: 20190510
  Receipt Date: 20190510
  Transmission Date: 20190711
  Serious: Yes (Other)
  Sender: FDA-Public Use
  Company Number: US-BRISTOL-MYERS SQUIBB COMPANY-BMS-2019-043209

PATIENT
  Age: 73 Year
  Sex: Male

DRUGS (3)
  1. OPDIVO [Suspect]
     Active Substance: NIVOLUMAB
     Indication: PRODUCT USED FOR UNKNOWN INDICATION
     Dosage: 480 MILLIGRAM, QMO
     Route: 065
     Dates: start: 20180920
  2. YERVOY [Suspect]
     Active Substance: IPILIMUMAB
     Indication: PAPILLARY RENAL CELL CARCINOMA
     Dosage: UNK
     Route: 065
  3. OPDIVO [Suspect]
     Active Substance: NIVOLUMAB
     Indication: PAPILLARY RENAL CELL CARCINOMA
     Dosage: UNK
     Route: 065
     Dates: start: 20180613

REACTIONS (3)
  - Thyroid disorder [Unknown]
  - Myositis [Unknown]
  - Arthritis [Unknown]
